FAERS Safety Report 18223074 (Version 1)
Quarter: 2020Q3

REPORT INFORMATION
  Report Type: Spontaneous
  Country: US (occurrence: US)
  Receive Date: 20200902
  Receipt Date: 20200902
  Transmission Date: 20201103
  Serious: Yes (Death)
  Sender: FDA-Public Use
  Company Number: None

PATIENT
  Age: 66 Year
  Sex: Female
  Weight: 106.14 kg

DRUGS (2)
  1. REMDESIVIR. [Suspect]
     Active Substance: REMDESIVIR
     Indication: COVID-19 TREATMENT
  2. N/A [Concomitant]
     Active Substance: UNSPECIFIED INGREDIENT

REACTIONS (8)
  - Pulse absent [None]
  - Acute respiratory failure [None]
  - Pneumonia bacterial [None]
  - Cardiac arrest [None]
  - Pneumonia [None]
  - Respiratory failure [None]
  - Pulmonary oedema [None]
  - Pneumonia viral [None]

NARRATIVE: CASE EVENT DATE: 20200901
